FAERS Safety Report 7620516-4 (Version None)
Quarter: 2011Q3

REPORT INFORMATION
  Report Type: 
  Country: None (occurrence: None)
  Receive Date: 20110719
  Receipt Date: 20110712
  Transmission Date: 20111222
  Serious: Yes (Hospitalization, Other)
  Sender: FDA-Public Use
  Company Number: US-PURDUE-USA-2011-0071088

PATIENT
  Sex: Male

DRUGS (2)
  1. XANAX [Suspect]
     Indication: PRODUCT USED FOR UNKNOWN INDICATION
  2. OXYCONTIN [Suspect]
     Indication: PRODUCT USED FOR UNKNOWN INDICATION
     Dosage: UNK UNK, SEE TEXT

REACTIONS (9)
  - NEGATIVE THOUGHTS [None]
  - SUICIDE ATTEMPT [None]
  - DRUG DEPENDENCE [None]
  - EUPHORIC MOOD [None]
  - PSYCHOMOTOR HYPERACTIVITY [None]
  - DRUG WITHDRAWAL SYNDROME [None]
  - MENTAL IMPAIRMENT [None]
  - PRODUCT QUALITY ISSUE [None]
  - INTENTIONAL DRUG MISUSE [None]
